FAERS Safety Report 4670590-2 (Version None)
Quarter: 2005Q2

REPORT INFORMATION
  Report Type: 
  Country: None (occurrence: None)
  Receive Date: 20050523
  Receipt Date: 20050512
  Transmission Date: 20051028
  Serious: Yes (Hospitalization)
  Sender: FDA-Public Use
  Company Number: 2005-128270-NL

PATIENT
  Age: 74 Year
  Sex: Female

DRUGS (4)
  1. MIRTAZAPINE [Suspect]
     Indication: DEPRESSION
     Dosage: 45 MG/60 MG
     Route: 048
     Dates: start: 20041124, end: 20050407
  2. MIRTAZAPINE [Suspect]
     Indication: DEPRESSION
     Dosage: 45 MG/60 MG
     Route: 048
     Dates: start: 20050408, end: 20050414
  3. OLMESARTAN MEDOXOMIL [Suspect]
     Dosage: DF
     Route: 048
     Dates: end: 20050414
  4. INDAPAMIDE [Suspect]
     Route: 048
     Dates: end: 20050414

REACTIONS (4)
  - ABDOMINAL PAIN [None]
  - CONSTIPATION [None]
  - HYPONATRAEMIA [None]
  - MALAISE [None]
